FAERS Safety Report 6210828-3 (Version None)
Quarter: 2009Q2

REPORT INFORMATION
  Report Type: 
  Country: None (occurrence: None)
  Receive Date: 20090601
  Receipt Date: 20090522
  Transmission Date: 20091009
  Serious: Yes (Other)
  Sender: FDA-Public Use
  Company Number: PHHY2009JP20173

PATIENT
  Age: 69 Year
  Sex: Female

DRUGS (3)
  1. TASIGNA [Suspect]
     Indication: CHRONIC MYELOID LEUKAEMIA
     Dosage: 800 MG DAILY
     Route: 048
     Dates: start: 20090515, end: 20090518
  2. BLOPRESS [Interacting]
     Dosage: UNK
     Route: 048
     Dates: end: 20090518
  3. CALSLOT [Interacting]
     Dosage: UNK
     Route: 048
     Dates: end: 20090518

REACTIONS (4)
  - DRUG INTERACTION [None]
  - HYPOTENSION [None]
  - LOSS OF CONSCIOUSNESS [None]
  - SICK SINUS SYNDROME [None]
